FAERS Safety Report 25892129 (Version 1)
Quarter: 2025Q4

REPORT INFORMATION
  Report Type: Spontaneous
  Country: EU (occurrence: EU)
  Receive Date: 20251007
  Receipt Date: 20251007
  Transmission Date: 20260117
  Serious: Yes (Hospitalization)
  Sender: ALEXION PHARMACEUTICALS
  Company Number: EU-ASTRAZENECA-202509GLO028237ES

PATIENT
  Age: 89 Year
  Sex: Male
  Weight: 50 kg

DRUGS (14)
  1. OMEPRAZOLE [Suspect]
     Active Substance: OMEPRAZOLE
     Indication: Gastritis prophylaxis
     Dosage: 20 MG 1-0-1
     Dates: start: 20230315, end: 20250805
  2. FUROSEMIDE [Suspect]
     Active Substance: FUROSEMIDE
     Indication: Hypertension
     Dosage: 40 MILLIGRAM, QD
     Dates: start: 20250620, end: 20250805
  3. LANTUS [Concomitant]
     Active Substance: INSULIN GLARGINE
  4. NOVORAPID [Concomitant]
     Active Substance: INSULIN ASPART
  5. REPAGLINIDE [Concomitant]
     Active Substance: REPAGLINIDE
     Dosage: 0.5 MILLIGRAM IN 1 DAY
  6. HALOPERIDOL [Concomitant]
     Active Substance: HALOPERIDOL
     Dosage: 1 AMPOULE IF AGITATED
  7. RISPERIDONE [Concomitant]
     Active Substance: RISPERIDONE
     Dosage: 1 MG/ML 10 DROPS - 5 DROPS - 10 DROPS
  8. SYMBICORT [Concomitant]
     Active Substance: BUDESONIDE\FORMOTEROL FUMARATE DIHYDRATE
     Dosage: 80/2.25 2-2-2
  9. BISOPROLOL [Concomitant]
     Active Substance: BISOPROLOL
     Dosage: 5 MILLIGRAM IN
  10. LOSARTAN [Concomitant]
     Active Substance: LOSARTAN
     Dosage: 50 MILLIGRAM IN 1 DAY
  11. RIVASTIGMINE [Concomitant]
     Active Substance: RIVASTIGMINE
     Dosage: 9.5 MILLIGRAM IN 1 DAY
  12. ASPIRIN [Concomitant]
     Active Substance: ASPIRIN
     Dosage: 100 MILLIGRAM IN 1 DAY
  13. AZOPT [Concomitant]
     Active Substance: BRINZOLAMIDE
  14. LINAGLIPTIN [Concomitant]
     Active Substance: LINAGLIPTIN
     Dosage: 5 MG IN A DAY

REACTIONS (6)
  - Hypomagnesaemia [Recovered/Resolved]
  - Hypocalcaemia [Recovered/Resolved]
  - Myoclonus [Recovered/Resolved]
  - Metabolic acidosis [Unknown]
  - Hyperphosphataemia [Unknown]
  - Subcutaneous emphysema [Unknown]

NARRATIVE: CASE EVENT DATE: 20250805
